FAERS Safety Report 5113914-4 (Version None)
Quarter: 2006Q3

REPORT INFORMATION
  Report Type: 
  Country: None (occurrence: None)
  Receive Date: 20060921
  Receipt Date: 20060908
  Transmission Date: 20061208
  Serious: Yes (Death, Life-Threatening, Hospitalization)
  Sender: FDA-Public Use
  Company Number: HQWYE518211SEP06

PATIENT
  Age: 47 Year
  Sex: Female

DRUGS (12)
  1. MYLOTARG [Suspect]
     Indication: ACUTE MYELOID LEUKAEMIA RECURRENT
     Dosage: 9 MG/M^2 1X PER 1 DAY
     Route: 041
     Dates: start: 20060808, end: 20060808
  2. DAUNORUBICIN HYDROCHLORIDE [Concomitant]
  3. HYDREA [Concomitant]
  4. CIPROXAN (CIPROFLOXACIN HYDROCHLORIDE) [Concomitant]
  5. SULPERAZON (CEFOPERAZONE SODIUM/SULBACTAM SODIUM) [Concomitant]
  6. TOBRAMYCIN SULFATE [Concomitant]
  7. FUNGUARD (MICAFUNGIN SODIUM) [Concomitant]
  8. VFEND [Concomitant]
  9. ZOVIRAX [Concomitant]
  10. URSO 250 [Concomitant]
  11. SOLU-MEDROL [Concomitant]
  12. HEPARIN [Concomitant]

REACTIONS (11)
  - ACUTE MYELOID LEUKAEMIA [None]
  - ANAEMIA [None]
  - BLOOD BILIRUBIN INCREASED [None]
  - DISEASE PROGRESSION [None]
  - HEPATOMEGALY [None]
  - LUNG INJURY [None]
  - MOUTH HAEMORRHAGE [None]
  - PLATELET COUNT DECREASED [None]
  - PSEUDOMONAL SEPSIS [None]
  - VENOOCCLUSIVE LIVER DISEASE [None]
  - WHITE BLOOD CELL COUNT DECREASED [None]
